FAERS Safety Report 8623429-4 (Version None)
Quarter: 2012Q3

REPORT INFORMATION
  Report Type: 
  Country: None (occurrence: None)
  Receive Date: 20120827
  Receipt Date: 20120815
  Transmission Date: 20120928
  Serious: Yes (Hospitalization)
  Sender: FDA-Public Use
  Company Number: US-ELI_LILLY_AND_COMPANY-US201208005286

PATIENT
  Sex: Female

DRUGS (18)
  1. LISINOPRIL [Concomitant]
     Dosage: UNK
  2. CRESTOR [Concomitant]
     Dosage: UNK
  3. MULTI-VITAMIN [Concomitant]
     Dosage: UNK
  4. LEVOTHYROXINE SODIUM [Concomitant]
     Dosage: UNK
  5. FORTEO [Suspect]
     Dosage: 20 UG, QD
     Dates: start: 20110401
  6. FISH OIL [Concomitant]
     Dosage: UNK
  7. FORTEO [Suspect]
     Indication: OSTEOPOROSIS
     Dosage: 20 UG, QD
     Dates: start: 20110401
  8. VITAMIN B-12 [Concomitant]
     Dosage: UNK
  9. MAGNESIUM CITRATE [Concomitant]
     Dosage: UNK
  10. AMITRIPTYLINE HYDROCHLORIDE [Concomitant]
     Dosage: UNK
  11. JANUVIA [Concomitant]
     Dosage: UNK
  12. ASPIRIN [Concomitant]
     Dosage: UNK
  13. CALCIUM [Concomitant]
     Dosage: UNK
  14. VITAMIN D [Concomitant]
     Dosage: UNK
  15. NIACIN [Concomitant]
     Dosage: UNK
  16. CRANBERRY [Concomitant]
     Dosage: UNK
  17. ASCORBIC ACID [Concomitant]
     Dosage: UNK
  18. INDAPAMIDE [Concomitant]
     Dosage: UNK

REACTIONS (2)
  - MEDICATION ERROR [None]
  - KNEE ARTHROPLASTY [None]
